FAERS Safety Report 8972583 (Version 2)
Quarter: 2012Q4

REPORT INFORMATION
  Report Type: 
  Country: US (occurrence: US)
  Receive Date: 20121219
  Receipt Date: 20121228
  Transmission Date: 20130627
  Serious: Yes (Death)
  Sender: FDA-Public Use
  Company Number: US-B.I. PHARMACEUTICALS,INC./RIDGEFIELD-2012-BI-03116BP

PATIENT
  Age: 81 Year
  Sex: Male

DRUGS (1)
  1. MIRAPEX [Suspect]
     Dosage: 0.375 mg
     Route: 048
     Dates: start: 2009

REACTIONS (1)
  - Parkinson^s disease [Fatal]
